FAERS Safety Report 15075638 (Version 1)
Quarter: 2018Q3

REPORT INFORMATION
  Report Type: Spontaneous
  Country: US (occurrence: US)
  Receive Date: 20180627
  Receipt Date: 20180627
  Transmission Date: 20181010
  Serious: No
  Sender: FDA-Public Use
  Company Number: US-SA-2018SA167474

PATIENT
  Age: 35 Year
  Sex: Female

DRUGS (2)
  1. CLOMIFENE CITRATE [Suspect]
     Active Substance: CLOMIPHENE
     Indication: INFERTILITY
     Dosage: 50 MG, BID
     Dates: start: 20180504, end: 20180504
  2. BENADRYL ALLERGY [Suspect]
     Active Substance: DIPHENHYDRAMINE HYDROCHLORIDE

REACTIONS (9)
  - Fluid retention [Recovered/Resolved]
  - Swelling face [Recovering/Resolving]
  - Disorientation [Recovered/Resolved]
  - Dysstasia [None]
  - Head discomfort [None]
  - Photosensitivity reaction [None]
  - Vomiting [Recovered/Resolved]
  - Erythema [Recovering/Resolving]
  - Dizziness [Recovered/Resolved]

NARRATIVE: CASE EVENT DATE: 201805
